FAERS Safety Report 5725441-1 (Version None)
Quarter: 2008Q2

REPORT INFORMATION
  Report Type: 
  Country: None (occurrence: None)
  Receive Date: 20080501
  Receipt Date: 20080423
  Transmission Date: 20081010
  Serious: Yes (Other)
  Sender: FDA-Public Use
  Company Number: GB-PFIZER INC-2008029180

PATIENT
  Age: 49 Year
  Sex: Female
  Weight: 69 kg

DRUGS (7)
  1. CHAMPIX [Suspect]
     Indication: SMOKING CESSATION THERAPY
     Route: 048
     Dates: start: 20071116, end: 20080214
  2. CEPHALEXIN [Concomitant]
     Indication: SKIN DISORDER
     Route: 048
  3. CEPHALEXIN [Concomitant]
     Indication: INFECTION PROPHYLAXIS
  4. ELLESTE-SOLO [Concomitant]
     Indication: MENOPAUSE
     Route: 048
  5. MEBEVERINE HYDROCHLORIDE [Concomitant]
     Indication: ABDOMINAL PAIN UPPER
     Route: 048
  6. NIFEDIPINE [Concomitant]
     Indication: RAYNAUD'S PHENOMENON
     Route: 048
  7. OMEPRAZOLE [Concomitant]
     Indication: ABDOMINAL PAIN UPPER
     Route: 048
     Dates: start: 20071114, end: 20080203

REACTIONS (3)
  - DEPRESSION [None]
  - SUICIDAL IDEATION [None]
  - WITHDRAWAL SYNDROME [None]
